FAERS Safety Report 10076664 (Version 2)
Quarter: 2014Q2

REPORT INFORMATION
  Report Type: Report from Study
  Country: PL (occurrence: PL)
  Receive Date: 20140414
  Receipt Date: 20140414
  Transmission Date: 20141212
  Serious: Yes (Hospitalization, Other)
  Sender: FDA-Public Use
  Company Number: PL-OTSUKA-US-2013-11898

PATIENT
  Age: 56 Year
  Sex: Female

DRUGS (1)
  1. OPC-14597 [Suspect]
     Indication: SCHIZOPHRENIA
     Dosage: 400 MG MILLIGRAM(S), QM
     Route: 030
     Dates: start: 20120216

REACTIONS (3)
  - Loss of consciousness [Recovered/Resolved]
  - Diabetes mellitus [Recovered/Resolved]
  - Myocardial ischaemia [Recovered/Resolved]
